FAERS Safety Report 6902274-1 (Version None)
Quarter: 2010Q3

REPORT INFORMATION
  Report Type: 
  Country: None (occurrence: None)
  Receive Date: 20100803
  Receipt Date: 20080506
  Transmission Date: 20110219
  Serious: No
  Sender: FDA-Public Use
  Company Number: US-PFIZER INC-2008030424

PATIENT
  Sex: Female
  Weight: 95.3 kg

DRUGS (6)
  1. LYRICA [Suspect]
     Indication: FIBROMYALGIA
     Dates: start: 20080301, end: 20080319
  2. LYRICA [Suspect]
     Indication: RADICULAR SYNDROME
  3. MS CONTIN [Concomitant]
  4. LEXAPRO [Concomitant]
  5. SEROQUEL [Concomitant]
  6. CYMBALTA [Concomitant]

REACTIONS (2)
  - MEDICATION ERROR [None]
  - PAIN [None]
